FAERS Safety Report 15603276 (Version 3)
Quarter: 2019Q1

REPORT INFORMATION
  Report Type: Spontaneous
  Country: PT (occurrence: PT)
  Receive Date: 20181109
  Receipt Date: 20190103
  Transmission Date: 20190417
  Serious: Yes (Other)
  Sender: FDA-Public Use
  Company Number: PT-TEVA-2018-PT-973613

PATIENT
  Age: 53 Year
  Sex: Male

DRUGS (1)
  1. ENTECAVIR TEVA [Suspect]
     Active Substance: ENTECAVIR
     Indication: CHRONIC HEPATITIS B
     Dosage: .5 MILLIGRAM DAILY; 0,5MG 24/24H
     Route: 048
     Dates: start: 20180830, end: 20181018

REACTIONS (4)
  - Eyelid irritation [Recovered/Resolved]
  - Product substitution issue [Unknown]
  - Eyelids pruritus [Recovered/Resolved]
  - Periorbital oedema [Not Recovered/Not Resolved]

NARRATIVE: CASE EVENT DATE: 20180830
